FAERS Safety Report 14280693 (Version 1)
Quarter: 2017Q4

REPORT INFORMATION
  Report Type: Spontaneous
  Country: US (occurrence: US)
  Receive Date: 20171213
  Receipt Date: 20171213
  Transmission Date: 20180321
  Serious: Yes (Hospitalization, Other)
  Sender: FDA-Public Use
  Company Number: US-B.I. PHARMACEUTICALS,INC./RIDGEFIELD-2017-BI-065544

PATIENT
  Sex: Male

DRUGS (7)
  1. MIRTAZAPINE. [Concomitant]
     Active Substance: MIRTAZAPINE
     Indication: ANXIETY
     Dosage: 1 TABLET 1 TIME DAILY;  FORM STRENGTH: 15 MG; FORMULATION: TABLET
     Route: 048
  2. ALPRAZOLAM. [Concomitant]
     Active Substance: ALPRAZOLAM
     Indication: ANXIETY
     Dosage: 1 TABLET 1 TIME DAILY;  FORM STRENGTH: 0.5 MG; FORMULATION: TABLET
     Route: 048
  3. SPIRIVA [Suspect]
     Active Substance: TIOTROPIUM BROMIDE MONOHYDRATE
     Indication: EMPHYSEMA
     Route: 055
     Dates: start: 2015, end: 2015
  4. AZELASTINE. [Concomitant]
     Active Substance: AZELASTINE HYDROCHLORIDE
     Indication: PRODUCT USED FOR UNKNOWN INDICATION
     Dosage: BID PRN 1 SPRAY EACH NOSTRIL;  FORMULATION: NASAL SPRAY;
     Route: 045
  5. FINASTERIDE. [Concomitant]
     Active Substance: FINASTERIDE
     Indication: PROSTATE CANCER
     Dosage: 1 TABLET 1 TIME DAILY;  FORM STRENGTH: 5 MG; FORMULATION: TABLET
     Route: 048
     Dates: start: 2007
  6. ASPIRIN. [Concomitant]
     Active Substance: ASPIRIN
     Indication: PRODUCT USED FOR UNKNOWN INDICATION
     Dosage: 1 TABLET BID;  FORM STRENGTH: 81 MG; FORMULATION: TABLET
     Route: 048
     Dates: end: 201703
  7. ALFUZOSIN [Concomitant]
     Active Substance: ALFUZOSIN
     Indication: PROSTATE CANCER
     Dosage: 1 TABLET 1 TIME DAILY;  FORM STRENGTH: 10 MG; FORMULATION: TABLET
     Route: 048
     Dates: start: 2007

REACTIONS (8)
  - Respiratory tract infection [Recovered/Resolved]
  - Cystitis [Recovered/Resolved]
  - Haematochezia [Not Recovered/Not Resolved]
  - Drug ineffective [Not Recovered/Not Resolved]
  - Constipation [Not Recovered/Not Resolved]
  - Emphysema [Not Recovered/Not Resolved]
  - Heart rate decreased [Recovered/Resolved]
  - Prostate cancer [Not Recovered/Not Resolved]

NARRATIVE: CASE EVENT DATE: 2015
